FAERS Safety Report 10674395 (Version 1)
Quarter: 2014Q4

REPORT INFORMATION
  Report Type: Spontaneous
  Country: US (occurrence: None)
  Receive Date: 20141223
  Receipt Date: 20141223
  Transmission Date: 20150529
  Serious: No
  Sender: FDA-Public Use
  Company Number: None

PATIENT
  Age: 26 Year
  Sex: Female

DRUGS (1)
  1. EXJADE [Suspect]
     Active Substance: DEFERASIROX
     Indication: ILL-DEFINED DISORDER
     Dosage: 1000 MG  DAILY  ORAL
     Route: 048
     Dates: start: 20140220

REACTIONS (2)
  - Diarrhoea [None]
  - Hair colour changes [None]
